FAERS Safety Report 6245294-5 (Version None)
Quarter: 2009Q2

REPORT INFORMATION
  Report Type: 
  Country: None (occurrence: None)
  Receive Date: 20090625
  Receipt Date: 20090623
  Transmission Date: 20091009
  Serious: Yes (Hospitalization)
  Sender: FDA-Public Use
  Company Number: JP-EISAI INC.-E2020-04810-SPO-JP

PATIENT
  Age: 79 Year
  Sex: Female

DRUGS (2)
  1. ARICEPT [Suspect]
     Indication: DEMENTIA ALZHEIMER'S TYPE
     Route: 048
     Dates: start: 20041026, end: 20080311
  2. ARICEPT [Suspect]
     Route: 048
     Dates: start: 20080312, end: 20090613

REACTIONS (1)
  - ELECTROCARDIOGRAM QT PROLONGED [None]
